FAERS Safety Report 19819943 (Version 1)
Quarter: 2021Q3

REPORT INFORMATION
  Report Type: Spontaneous
  Country: US (occurrence: US)
  Receive Date: 20210913
  Receipt Date: 20210913
  Transmission Date: 20211014
  Serious: No
  Sender: FDA-Public Use
  Company Number: US-SA-2021SA295317

PATIENT
  Sex: Male

DRUGS (16)
  1. TRIAMCINOLONE [Concomitant]
     Active Substance: TRIAMCINOLONE
  2. DIGOXIN. [Concomitant]
     Active Substance: DIGOXIN
  3. BROMSITE [Concomitant]
     Active Substance: BROMFENAC SODIUM
  4. CLOBETASOL [Concomitant]
     Active Substance: CLOBETASOL
  5. LOSARTAN POTASSIUM. [Concomitant]
     Active Substance: LOSARTAN POTASSIUM
  6. ESZOPICLONE. [Concomitant]
     Active Substance: ESZOPICLONE
  7. OFLOXACIN. [Concomitant]
     Active Substance: OFLOXACIN
  8. INVELTYS [Concomitant]
     Active Substance: LOTEPREDNOL ETABONATE
  9. DUPIXENT [Suspect]
     Active Substance: DUPILUMAB
     Indication: DERMATITIS ATOPIC
     Dosage: 300 MG, QOW
     Route: 058
  10. OMEPRAZOLE. [Concomitant]
     Active Substance: OMEPRAZOLE
  11. CORTISONE ACETATE. [Concomitant]
     Active Substance: CORTISONE ACETATE
  12. TYLENOL [Concomitant]
     Active Substance: ACETAMINOPHEN
  13. FUROSEMIDE. [Concomitant]
     Active Substance: FUROSEMIDE
  14. GABAPENTIN. [Concomitant]
     Active Substance: GABAPENTIN
  15. METHOCARBAMOL. [Concomitant]
     Active Substance: METHOCARBAMOL
  16. OXYCODONE [Concomitant]
     Active Substance: OXYCODONE

REACTIONS (1)
  - Therapeutic product effect decreased [Unknown]
